FAERS Safety Report 24326217 (Version 2)
Quarter: 2025Q1

REPORT INFORMATION
  Report Type: Report from Study
  Country: US (occurrence: US)
  Receive Date: 20240917
  Receipt Date: 20250324
  Transmission Date: 20250409
  Serious: Yes (Other)
  Sender: ABBVIE
  Company Number: US-ABBVIE-5920715

PATIENT
  Sex: Female

DRUGS (1)
  1. HUMIRA [Suspect]
     Active Substance: ADALIMUMAB
     Indication: Psoriasis
     Route: 058
     Dates: start: 20190530

REACTIONS (3)
  - Facioscapulohumeral muscular dystrophy [Not Recovered/Not Resolved]
  - Visual impairment [Recovering/Resolving]
  - Corneal graft rejection [Recovering/Resolving]
